FAERS Safety Report 5231329-5 (Version None)
Quarter: 2007Q1

REPORT INFORMATION
  Report Type: 
  Country: None (occurrence: None)
  Receive Date: 20070206
  Receipt Date: 20070125
  Transmission Date: 20070707
  Serious: Yes (Life-Threatening, Hospitalization, Disabling)
  Sender: FDA-Public Use
  Company Number: FR-GILEAD-2006-0010245

PATIENT
  Sex: Male
  Weight: 78 kg

DRUGS (8)
  1. VIREAD [Suspect]
     Indication: HIV INFECTION
     Route: 048
     Dates: start: 20060516, end: 20060915
  2. KALETRA [Concomitant]
     Indication: HIV INFECTION
     Route: 048
     Dates: start: 20060516
  3. EPIVIR [Concomitant]
     Route: 048
     Dates: start: 20060516
  4. EFFEXOR [Concomitant]
     Indication: DEPRESSION
     Dates: start: 20051001
  5. ATARAX [Concomitant]
     Indication: DEPRESSION
  6. LEXOMIL [Concomitant]
     Indication: DEPRESSION
  7. TIAPRIDAL [Concomitant]
     Indication: DEPRESSION
  8. ZOLPIDEM TARTRATE [Concomitant]
     Indication: DEPRESSION

REACTIONS (3)
  - DEPRESSED LEVEL OF CONSCIOUSNESS [None]
  - NEUROLOGICAL SYMPTOM [None]
  - RENAL FAILURE [None]
